FAERS Safety Report 9776052 (Version 1)
Quarter: 2013Q4

REPORT INFORMATION
  Report Type: Spontaneous
  Country: JP (occurrence: None)
  Receive Date: 20131219
  Receipt Date: 20131219
  Transmission Date: 20140711
  Serious: Yes (Hospitalization)
  Sender: FDA-Public Use
  Company Number: A1053830A

PATIENT
  Sex: Male

DRUGS (2)
  1. PAROXETINE HYDROCHLORIDE [Suspect]
     Indication: SOCIAL PHOBIA
  2. QUETIAPINE [Suspect]
     Indication: SOCIAL PHOBIA

REACTIONS (8)
  - Dizziness [None]
  - Malaise [None]
  - Suicidal ideation [None]
  - Abulia [None]
  - Myalgia [None]
  - Grand mal convulsion [None]
  - Middle insomnia [None]
  - No therapeutic response [None]
